FAERS Safety Report 5257310-8 (Version None)
Quarter: 2007Q1

REPORT INFORMATION
  Report Type: 
  Country: None (occurrence: None)
  Receive Date: 20070302
  Receipt Date: 20070215
  Transmission Date: 20070707
  Serious: Yes (Disabling, Other)
  Sender: FDA-Public Use
  Company Number: US-1161349

PATIENT

DRUGS (4)
  1. VIGAMOX 0.5% SOLUTION [Suspect]
     Indication: ANTIBIOTIC PROPHYLAXIS
     Dosage: 0.5 ML INTRACAMERAL INJECTION ONCE INTRAOCULAR
     Route: 031
     Dates: start: 20070214, end: 20070214
  2. PREDNISOLONE ACETATE [Concomitant]
  3. VIGAMOX [Concomitant]
  4. NEVANAC [Concomitant]

REACTIONS (3)
  - CORNEAL OEDEMA [None]
  - POST PROCEDURAL COMPLICATION [None]
  - VISUAL ACUITY REDUCED [None]
